FAERS Safety Report 6829469-X (Version None)
Quarter: 2010Q3

REPORT INFORMATION
  Report Type: 
  Country: None (occurrence: None)
  Receive Date: 20100709
  Receipt Date: 20070309
  Transmission Date: 20110219
  Serious: Yes (Hospitalization)
  Sender: FDA-Public Use
  Company Number: US-PFIZER INC-2007019153

PATIENT
  Age: 78 Year
  Sex: Male
  Weight: 67 kg

DRUGS (9)
  1. CHANTIX [Suspect]
     Dates: start: 20070219, end: 20070305
  2. ALLOPURINOL [Concomitant]
     Route: 048
  3. RANITIDINE [Concomitant]
     Route: 048
  4. THEOPHYLLINE [Concomitant]
     Route: 048
  5. COMBIVENT [Concomitant]
     Route: 055
  6. DESLORATADINE [Concomitant]
     Route: 048
  7. DONEPEZIL HCL [Concomitant]
     Route: 048
  8. SPIRIVA [Concomitant]
     Route: 055
  9. FLUTICASONE [Concomitant]
     Route: 055

REACTIONS (1)
  - GASTROINTESTINAL HAEMORRHAGE [None]
